FAERS Safety Report 4559724-8 (Version None)
Quarter: 2005Q1

REPORT INFORMATION
  Report Type: 
  Country: None (occurrence: None)
  Receive Date: 20050114
  Receipt Date: 20040120
  Transmission Date: 20050727
  Serious: Yes (Hospitalization)
  Sender: FDA-Public Use
  Company Number: BDI-005772

PATIENT
  Sex: Male

DRUGS (1)
  1. PROHANCE [Suspect]
     Indication: PERIPHERAL VASCULAR DISORDER
     Dosage: 40 ML ONCE IV
     Route: 042
     Dates: start: 20040120, end: 20040120

REACTIONS (3)
  - HEART RATE DECREASED [None]
  - HYPOTENSION [None]
  - LETHARGY [None]
